FAERS Safety Report 8413385-6 (Version None)
Quarter: 2012Q2

REPORT INFORMATION
  Report Type: 
  Country: None (occurrence: None)
  Receive Date: 20120605
  Receipt Date: 20120528
  Transmission Date: 20120825
  Serious: Yes (Other)
  Sender: FDA-Public Use
  Company Number: PHHY2012JP043830

PATIENT
  Age: 51 Year
  Sex: Male

DRUGS (3)
  1. CYCLOSPORINE [Suspect]
     Indication: PSORIASIS
     Dosage: UNK UKN, UNK
     Route: 048
  2. STEROIDS NOS [Concomitant]
     Indication: PSORIASIS
     Dosage: UNK UKN, UNK
     Route: 061
  3. VITAMIN D [Concomitant]
     Indication: PSORIASIS
     Dosage: UNK UKN, UNK
     Route: 061

REACTIONS (9)
  - RASH [None]
  - CONDITION AGGRAVATED [None]
  - SKIN PAPILLOMA [None]
  - DERMATITIS EXFOLIATIVE [None]
  - RENAL DISORDER [None]
  - SKIN HYPERTROPHY [None]
  - PAPILLOMA [None]
  - SKIN PLAQUE [None]
  - HYPERKERATOSIS [None]
